FAERS Safety Report 9693313 (Version 3)
Quarter: 2014Q1

REPORT INFORMATION
  Report Type: Spontaneous
  Country: US (occurrence: None)
  Receive Date: 20131114
  Receipt Date: 20140129
  Transmission Date: 20141002
  Serious: Yes (Death, Hospitalization)
  Sender: FDA-Public Use
  Company Number: 2013-US-002859

PATIENT
  Age: 69 Year
  Sex: Male

DRUGS (7)
  1. CLOZAPINE [Suspect]
     Indication: SCHIZOPHRENIA
     Route: 048
     Dates: start: 20121121, end: 20130301
  2. GEODON (ZIPRASIDONE HYDROCHLORIDE) [Concomitant]
  3. EXELON (RIVASTIGMINE TARTRATE) [Concomitant]
  4. PRAVASTATIN (PRAVASTATIN SODIUM) [Concomitant]
  5. SINGULAIR [Concomitant]
  6. FENTANYL (FENTANYL CITRATE) PATCH [Concomitant]
  7. DEPAKOTE (VALPROATE SEMISODIUM) [Concomitant]

REACTIONS (2)
  - Pneumonia [None]
  - Dyspnoea [None]
